FAERS Safety Report 18119124 (Version 1)
Quarter: 2020Q3

REPORT INFORMATION
  Report Type: Spontaneous
  Country: GB (occurrence: GB)
  Receive Date: 20200806
  Receipt Date: 20200806
  Transmission Date: 20201103
  Serious: Yes (Other)
  Sender: FDA-Public Use
  Company Number: GB-TEVA-2020-GB-1809528

PATIENT
  Age: 26 Year
  Sex: Female
  Weight: 42 kg

DRUGS (6)
  1. PROVERA [Concomitant]
     Active Substance: MEDROXYPROGESTERONE ACETATE
  2. LITHIUM CARBONATE. [Concomitant]
     Active Substance: LITHIUM CARBONATE
  3. LAMOTRIGINE. [Suspect]
     Active Substance: LAMOTRIGINE
     Indication: BIPOLAR DISORDER
     Dosage: 100 MILLIGRAM
     Route: 048
     Dates: start: 20191125
  4. PROMETHAZINE [Suspect]
     Active Substance: PROMETHAZINE HYDROCHLORIDE
     Indication: INSOMNIA
     Dosage: 25 MILLIGRAM
     Route: 048
     Dates: start: 20191206, end: 20191214
  5. PROGYNOVA [Concomitant]
     Active Substance: ESTRADIOL VALERATE
  6. ZOPICLONE [Concomitant]
     Active Substance: ZOPICLONE

REACTIONS (10)
  - Restlessness [Unknown]
  - Psychomotor hyperactivity [Recovered/Resolved]
  - Bipolar disorder [Recovered/Resolved]
  - Sleep disorder [Recovered/Resolved]
  - Mania [Recovered/Resolved]
  - Hypersomnia [Unknown]
  - Lethargy [Unknown]
  - Psychomotor hyperactivity [Unknown]
  - Depression [Recovered/Resolved]
  - Fatigue [Recovered/Resolved]

NARRATIVE: CASE EVENT DATE: 201910
